FAERS Safety Report 23666499 (Version 1)
Quarter: 2024Q1

REPORT INFORMATION
  Report Type: Spontaneous
  Country: US (occurrence: US)
  Receive Date: 20240324
  Receipt Date: 20240324
  Transmission Date: 20240409
  Serious: No
  Sender: FDA-Public Use
  Company Number: US-BRISTOL-MYERS SQUIBB COMPANY-2024-046660

PATIENT
  Age: 70 Year
  Sex: Male
  Weight: 90.72 kg

DRUGS (2)
  1. ELIQUIS [Suspect]
     Active Substance: APIXABAN
     Indication: Ventricular tachycardia
     Route: 048
     Dates: start: 2020
  2. TESTOSTERONE [Concomitant]
     Active Substance: TESTOSTERONE
     Indication: Product used for unknown indication
     Dates: start: 2007

REACTIONS (5)
  - Tooth fracture [Unknown]
  - Product dose omission issue [Unknown]
  - Headache [Unknown]
  - Dyspnoea [Unknown]
  - Off label use [Unknown]
